FAERS Safety Report 4832396-0 (Version None)
Quarter: 2005Q4

REPORT INFORMATION
  Report Type: 
  Country: None (occurrence: None)
  Receive Date: 20051117
  Receipt Date: 20051102
  Transmission Date: 20060501
  Serious: Yes (Hospitalization)
  Sender: FDA-Public Use
  Company Number: USA0508105821

PATIENT
  Age: 52 Year
  Sex: Male

DRUGS (6)
  1. CYMBALTA [Suspect]
     Dates: start: 20050809, end: 20050815
  2. TYLENOL [Concomitant]
  3. NEURONTIN [Concomitant]
  4. SKELAXIN [Concomitant]
  5. FLEXERIL [Concomitant]
  6. DARVOCET [Concomitant]

REACTIONS (1)
  - HEPATITIS ALCOHOLIC [None]
